FAERS Safety Report 21657596 (Version 1)
Quarter: 2022Q4

REPORT INFORMATION
  Report Type: Report from Study
  Country: US (occurrence: US)
  Receive Date: 20221129
  Receipt Date: 20221129
  Transmission Date: 20230113
  Serious: No
  Sender: FDA-Public Use
  Company Number: US-ABBVIE-4217038

PATIENT
  Sex: Female

DRUGS (1)
  1. IMBRUVICA [Suspect]
     Active Substance: IBRUTINIB
     Indication: Chronic lymphocytic leukaemia
     Dosage: ONSET DATE OF THE EVENT BLOOD IN URINE: 2022?DUE TO PARTIAL DATE COULD NOT CAPTURE IN THE CASE
     Route: 048
     Dates: start: 202210

REACTIONS (1)
  - Blood urine present [Unknown]
